FAERS Safety Report 17560830 (Version 1)
Quarter: 2020Q1

REPORT INFORMATION
  Report Type: Spontaneous
  Country: US (occurrence: US)
  Receive Date: 20200319
  Receipt Date: 20200319
  Transmission Date: 20200409
  Serious: Yes (Other)
  Sender: FDA-Public Use
  Company Number: US-BAYER-2020-044332

PATIENT
  Sex: Female

DRUGS (2)
  1. BAYER LOW DOSE [Suspect]
     Active Substance: ASPIRIN
     Dosage: UNK
     Route: 048
  2. BAYER ASPIRIN [Suspect]
     Active Substance: ASPIRIN

REACTIONS (1)
  - Adverse drug reaction [Unknown]
